FAERS Safety Report 8925314 (Version 1)
Quarter: 2012Q4

REPORT INFORMATION
  Report Type: Spontaneous
  Country: US (occurrence: None)
  Receive Date: 20121116
  Receipt Date: 20121116
  Transmission Date: 20130627
  Serious: Yes (Other)
  Sender: FDA-Public Use
  Company Number: 20120693

PATIENT

DRUGS (2)
  1. METHYLERGONOVINE MALEATE [Suspect]
     Dosage: (0.2 mg/ml)
  2. METHYLERGONOVINE MALEATE [Suspect]
     Dosage: (0.2 mg/mL)
injection, NOS

REACTIONS (7)
  - Convulsion [None]
  - Chills [None]
  - Muscle rigidity [None]
  - Accidental exposure to product [None]
  - Wrong drug administered [None]
  - Drug label confusion [None]
  - Product quality issue [None]
